FAERS Safety Report 5481004-7 (Version None)
Quarter: 2007Q4

REPORT INFORMATION
  Report Type: 
  Country: None (occurrence: None)
  Receive Date: 20071009
  Receipt Date: 20070928
  Transmission Date: 20080405
  Serious: Yes (Other)
  Sender: FDA-Public Use
  Company Number: US-PFIZER INC-2007075792

PATIENT
  Sex: Female
  Weight: 65.8 kg

DRUGS (19)
  1. CHANTIX [Suspect]
     Indication: SMOKING CESSATION THERAPY
  2. ERYTHROMYCIN [Suspect]
  3. VERAPAMIL - SLOW RELEASE [Concomitant]
  4. ACETYLSALICYLIC ACID [Concomitant]
  5. IMDUR [Concomitant]
  6. TENORMIN [Concomitant]
  7. SPIRONOLACTONE [Concomitant]
  8. LASIX [Concomitant]
  9. NITROSTAT [Concomitant]
  10. LIPITOR [Concomitant]
  11. TRAZODONE HCL [Concomitant]
  12. ALBUTEROL [Concomitant]
  13. CETIRIZINE HCL [Concomitant]
  14. DIPHENHYDRAMINE HCL [Concomitant]
  15. PSEUDOEPHEDRINE HCL [Concomitant]
  16. CYCLOSPORINE [Concomitant]
  17. ZADITOR [Concomitant]
  18. NAPROXEN [Concomitant]
  19. PLAVIX [Concomitant]

REACTIONS (10)
  - ABDOMINAL DISTENSION [None]
  - ABDOMINAL PAIN UPPER [None]
  - AGITATION [None]
  - ANXIETY [None]
  - BODY HEIGHT [None]
  - CHRONIC OBSTRUCTIVE PULMONARY DISEASE [None]
  - FLATULENCE [None]
  - HEADACHE [None]
  - INITIAL INSOMNIA [None]
  - NAUSEA [None]
